FAERS Safety Report 10448274 (Version 1)
Quarter: 2014Q3

REPORT INFORMATION
  Report Type: Report from Study
  Country: AR (occurrence: AR)
  Receive Date: 20140911
  Receipt Date: 20140911
  Transmission Date: 20150326
  Serious: Yes (Other)
  Sender: FDA-Public Use
  Company Number: PHHY2014AR117508

PATIENT
  Age: 77 Year
  Sex: Female

DRUGS (1)
  1. EXELON [Suspect]
     Active Substance: RIVASTIGMINE TARTRATE
     Indication: MEMORY IMPAIRMENT
     Dosage: 1 DF, DAILY
     Route: 048

REACTIONS (8)
  - Renal cyst [Unknown]
  - Gait disturbance [Recovering/Resolving]
  - Sciatic nerve injury [Recovering/Resolving]
  - Musculoskeletal discomfort [Recovering/Resolving]
  - Synovial rupture [Recovering/Resolving]
  - Synovial cyst [Recovering/Resolving]
  - Hypersensitivity [Recovered/Resolved]
  - Abasia [Recovering/Resolving]

NARRATIVE: CASE EVENT DATE: 20131222
